FAERS Safety Report 8556870-9 (Version None)
Quarter: 2012Q3

REPORT INFORMATION
  Report Type: 
  Country: None (occurrence: None)
  Receive Date: 20120801
  Receipt Date: 20120726
  Transmission Date: 20120928
  Serious: Yes (Hospitalization, Other)
  Sender: FDA-Public Use
  Company Number: US-BAYER-2012-075677

PATIENT
  Age: 65 Year
  Sex: Male

DRUGS (2)
  1. CIPROFLOXACIN HCL [Suspect]
     Indication: PSEUDOMONAS INFECTION
     Dosage: 500 MG, BID
     Route: 048
     Dates: start: 20111201, end: 20120701
  2. CIPROFLOXACIN HCL [Suspect]
     Indication: STAPHYLOCOCCAL INFECTION

REACTIONS (7)
  - BURSITIS [None]
  - PAIN [None]
  - BLOOD PRESSURE INCREASED [None]
  - BACK PAIN [None]
  - ARTHRALGIA [None]
  - ASTHENIA [None]
  - NECK PAIN [None]
